FAERS Safety Report 18886820 (Version 3)
Quarter: 2024Q4

REPORT INFORMATION
  Report Type: Report from Study
  Country: KR (occurrence: KR)
  Receive Date: 20210212
  Receipt Date: 20241125
  Transmission Date: 20250115
  Serious: Yes (Other)
  Sender: NOVARTIS
  Company Number: NVSC2021KR028451

PATIENT
  Sex: Female

DRUGS (8)
  1. RYDAPT [Suspect]
     Active Substance: MIDOSTAURIN
     Indication: Acute myeloid leukaemia
     Dosage: 50 MG, BID
     Route: 048
     Dates: start: 20201113, end: 20201126
  2. BEAROBAN [Concomitant]
     Indication: Pyoderma gangrenosum
     Dosage: 1 G (DERMA)
     Route: 065
     Dates: start: 20201126, end: 20201208
  3. Citopcin [Concomitant]
     Indication: Prophylaxis
     Dosage: 1000 MG
     Route: 048
     Dates: start: 20201106, end: 20201125
  4. COMBIFLEX LIPID CENTRAL [Concomitant]
     Indication: Prophylaxis
     Dosage: 1000 ML
     Route: 042
     Dates: start: 20201112, end: 20201115
  5. NORVASC [Concomitant]
     Active Substance: AMLODIPINE BESYLATE
     Indication: Hypertension
     Dosage: 5 MG (ODT)
     Route: 048
     Dates: start: 2013
  6. LEVOTHYROXINE SODIUM [Concomitant]
     Active Substance: LEVOTHYROXINE SODIUM
     Indication: Thyroid cancer
     Dosage: 150 UG
     Route: 048
     Dates: start: 2012
  7. VANCOZIN [Concomitant]
     Indication: Clostridium difficile infection
     Dosage: 4 DOSAGE FORM
     Route: 048
     Dates: start: 20201116, end: 20201125
  8. TAPOCIN [Concomitant]
     Indication: Prophylaxis
     Dosage: 800 MG
     Route: 042
     Dates: start: 20201126, end: 20201201

REACTIONS (1)
  - Neuropathy peripheral [Recovering/Resolving]

NARRATIVE: CASE EVENT DATE: 20201118
